FAERS Safety Report 9394089 (Version 1)
Quarter: 2013Q3

REPORT INFORMATION
  Report Type: Report from Study
  Country: JP (occurrence: JP)
  Receive Date: 20130710
  Receipt Date: 20130710
  Transmission Date: 20140515
  Serious: Yes (Death)
  Sender: FDA-Public Use
  Company Number: JP-GILEAD-2013-0078848

PATIENT
  Age: 61 Year
  Sex: Male

DRUGS (2)
  1. EMTRICITABINE/TENOFOVIR DISOPROXIL FUMARATE [Suspect]
     Indication: HIV INFECTION
     Dosage: 1 DF, QD
     Route: 048
     Dates: start: 20090708, end: 201209
  2. STOCRIN [Suspect]
     Indication: HIV INFECTION
     Route: 048
     Dates: start: 20090708, end: 201209

REACTIONS (1)
  - Myocardial ischaemia [Fatal]
